FAERS Safety Report 4432474-4 (Version None)
Quarter: 2004Q3

REPORT INFORMATION
  Report Type: 
  Country: None (occurrence: None)
  Receive Date: 20040820
  Receipt Date: 20040721
  Transmission Date: 20050211
  Serious: Yes (Hospitalization, Other)
  Sender: FDA-Public Use
  Company Number: 2184

PATIENT
  Age: 13 Year
  Sex: Male

DRUGS (1)
  1. PHENOBARBITAL 100MG TABLETS [Suspect]
     Indication: CONVULSION
     Dosage: 100 MG 3.5/DAY ORAL
     Route: 048

REACTIONS (4)
  - CONVULSION [None]
  - DRUG TOXICITY [None]
  - NEPHROLITHIASIS [None]
  - PHARMACEUTICAL PRODUCT COMPLAINT [None]
